FAERS Safety Report 4970296-6 (Version None)
Quarter: 2006Q2

REPORT INFORMATION
  Report Type: 
  Country: None (occurrence: None)
  Receive Date: 20060331
  Receipt Date: 20050615
  Transmission Date: 20061013
  Serious: Yes (Hospitalization)
  Sender: FDA-Public Use
  Company Number: 2005BH000331

PATIENT
  Sex: Male

DRUGS (3)
  1. IVEEGAM [Suspect]
     Indication: PERONEAL MUSCULAR ATROPHY
     Dosage: 50 MG; EVERY DAY; IV
     Route: 042
     Dates: start: 20050510, end: 20050512
  2. DALTEPARIN SODIUM [Concomitant]
  3. AMARYL [Concomitant]

REACTIONS (1)
  - BLOOD GLUCOSE INCREASED [None]
